FAERS Safety Report 8984886 (Version 1)
Quarter: 2012Q4

REPORT INFORMATION
  Report Type: 
  Country: US (occurrence: US)
  Receive Date: 20121226
  Receipt Date: 20121226
  Transmission Date: 20130627
  Serious: Yes (Other)
  Sender: FDA-Public Use
  Company Number: US-PFIZER INC-2012325458

PATIENT
  Age: 53 Year
  Sex: Female
  Weight: 73 kg

DRUGS (2)
  1. ARTHROTEC [Suspect]
     Indication: TENDINITIS
     Dosage: 1 DF(200 mcg+75mg), 2x/day
     Route: 048
     Dates: start: 20121217, end: 20121218
  2. SYNTHROID [Concomitant]
     Indication: THYROID ACTIVITY DECREASED
     Dosage: UNK

REACTIONS (4)
  - Urinary tract infection [Recovered/Resolved]
  - Flushing [Recovered/Resolved]
  - Erythema [Recovered/Resolved]
  - Tinnitus [Not Recovered/Not Resolved]
